FAERS Safety Report 13510439 (Version 2)
Quarter: 2017Q2

REPORT INFORMATION
  Report Type: Spontaneous
  Country: US (occurrence: US)
  Receive Date: 20170503
  Receipt Date: 20170630
  Transmission Date: 20170830
  Serious: Yes (Other)
  Sender: FDA-Public Use
  Company Number: US-PFIZER INC-2017186192

PATIENT
  Age: 75 Year
  Sex: Male

DRUGS (4)
  1. XTANDI [Suspect]
     Active Substance: ENZALUTAMIDE
     Dosage: 160 MG, 1X/DAY (BEDTIME)
     Route: 048
  2. GABAPENTIN. [Suspect]
     Active Substance: GABAPENTIN
     Dosage: UNK
     Route: 065
     Dates: end: 201702
  3. METFORMIN HCL [Suspect]
     Active Substance: METFORMIN HYDROCHLORIDE
     Dosage: UNK
     Route: 065
     Dates: end: 201612
  4. XTANDI [Suspect]
     Active Substance: ENZALUTAMIDE
     Indication: PROSTATE CANCER
     Dosage: 160 MG, 1X/DAY
     Route: 048
     Dates: start: 201402

REACTIONS (14)
  - Upper limb fracture [Recovered/Resolved]
  - Joint swelling [Unknown]
  - Vertigo [Not Recovered/Not Resolved]
  - Nausea [Recovered/Resolved]
  - Fall [Recovered/Resolved]
  - Nasopharyngitis [Unknown]
  - Joint dislocation [Recovered/Resolved]
  - Dizziness [Recovered/Resolved]
  - Hot flush [Recovering/Resolving]
  - Pain [Unknown]
  - Dizziness [Not Recovered/Not Resolved]
  - Fall [Recovered/Resolved]
  - Influenza like illness [Unknown]
  - Diarrhoea [Recovered/Resolved]

NARRATIVE: CASE EVENT DATE: 201611
